FAERS Safety Report 22331662 (Version 2)
Quarter: 2023Q2

REPORT INFORMATION
  Report Type: Spontaneous
  Country: US (occurrence: US)
  Receive Date: 20230517
  Receipt Date: 20230522
  Transmission Date: 20230722
  Serious: Yes (Other)
  Sender: FDA-Public Use
  Company Number: US-MLMSERVICE-20230504-4267462-1

PATIENT
  Age: 66 Year
  Sex: Male

DRUGS (8)
  1. VANCOMYCIN HYDROCHLORIDE [Suspect]
     Active Substance: VANCOMYCIN HYDROCHLORIDE
     Indication: Clostridium difficile infection
     Dosage: FREQ:6 H;
     Route: 048
  2. SODIUM CHLORIDE [Concomitant]
     Active Substance: SODIUM CHLORIDE
     Dosage: TOTAL FLUID BOLUS
     Route: 042
  3. SODIUM CHLORIDE [Concomitant]
     Active Substance: SODIUM CHLORIDE
     Dosage: FREQ:1 H;MAINTENANCE FLUIDS
     Route: 042
  4. SODIUM BICARBONATE [Concomitant]
     Active Substance: SODIUM BICARBONATE
     Dosage: 300 MEQ BOLUS
     Route: 042
  5. SODIUM BICARBONATE [Concomitant]
     Active Substance: SODIUM BICARBONATE
     Dosage: 150 MEQ OF BICARBONATE IN 1 L OF FREE WATER AT 250 ML/H
  6. FOLATE SODIUM [Concomitant]
     Active Substance: FOLATE SODIUM
     Dosage: UNK
  7. THIAMINE [Concomitant]
     Active Substance: THIAMINE
     Dosage: UNK
  8. APIXABAN [Concomitant]
     Active Substance: APIXABAN
     Indication: Deep vein thrombosis
     Dosage: UNK

REACTIONS (7)
  - Lymphocyte morphology abnormal [Recovered/Resolved]
  - Rash pruritic [Recovered/Resolved]
  - Neutrophilia [Recovered/Resolved]
  - Eosinophilia [Recovered/Resolved]
  - Leukocytosis [Recovered/Resolved]
  - Rash maculo-papular [Recovered/Resolved]
  - Drug eruption [Recovered/Resolved]
